FAERS Safety Report 19903861 (Version 2)
Quarter: 2021Q4

REPORT INFORMATION
  Report Type: Other
  Country: US (occurrence: US)
  Receive Date: 20211001
  Receipt Date: 20211020
  Transmission Date: 20220304
  Serious: Yes (Other)
  Sender: FDA-Public Use
  Company Number: US-ROCHE-2925215

PATIENT
  Sex: Male

DRUGS (2)
  1. ESBRIET [Suspect]
     Active Substance: PIRFENIDONE
     Indication: Idiopathic pulmonary fibrosis
     Dosage: ONGOING-YES, 1 TABLET
     Route: 048
     Dates: start: 20191001
  2. ESBRIET [Concomitant]
     Active Substance: PIRFENIDONE

REACTIONS (3)
  - Oesophageal carcinoma [Unknown]
  - Dysphagia [Unknown]
  - Wrong technique in product usage process [Unknown]
